FAERS Safety Report 19740588 (Version 1)
Quarter: 2021Q3

REPORT INFORMATION
  Report Type: Report from Study
  Country: US (occurrence: US)
  Receive Date: 20210824
  Receipt Date: 20210824
  Transmission Date: 20211014
  Serious: Yes (Death, Hospitalization, Other)
  Sender: FDA-Public Use
  Company Number: US-PFIZER INC-2021701053

PATIENT
  Age: 53 Year
  Sex: Female

DRUGS (3)
  1. IBRANCE [Suspect]
     Active Substance: PALBOCICLIB
     Dosage: 125 MG, CYCLIC (DAILY FOR 21 DAYS OF 28 DAYS)
     Route: 048
     Dates: start: 20210605, end: 20210811
  2. FASLODEX [Concomitant]
     Active Substance: FULVESTRANT
     Dosage: UNK
  3. IBRANCE [Suspect]
     Active Substance: PALBOCICLIB
     Indication: BREAST CANCER FEMALE
     Dosage: 125 MG, CYCLIC (125 MG DAILY FOR 21 DAYS OF 28 DAYS)
     Route: 048
     Dates: start: 20210605, end: 20210708

REACTIONS (14)
  - Feeling abnormal [Unknown]
  - Computerised tomogram thorax abnormal [Unknown]
  - Vomiting [Unknown]
  - Pleural effusion [Unknown]
  - Pain [Unknown]
  - Hip fracture [Unknown]
  - Dyspnoea [Unknown]
  - Neoplasm progression [Unknown]
  - Taste disorder [Unknown]
  - Pneumonia [Unknown]
  - Oxygen saturation decreased [Unknown]
  - Death [Fatal]
  - Spinal fracture [Unknown]
  - Upper limb fracture [Unknown]

NARRATIVE: CASE EVENT DATE: 20210607
